FAERS Safety Report 6456449-9 (Version None)
Quarter: 2009Q4

REPORT INFORMATION
  Report Type: 
  Country: None (occurrence: None)
  Receive Date: 20091125
  Receipt Date: 20091116
  Transmission Date: 20100525
  Serious: Yes (Hospitalization, Other)
  Sender: FDA-Public Use
  Company Number: US-ELI_LILLY_AND_COMPANY-US200911003984

PATIENT
  Sex: Female

DRUGS (11)
  1. FORTEO [Suspect]
     Indication: OSTEOPOROSIS
     Dosage: UNK, DAILY (1/D)
     Dates: start: 20090421
  2. FORTEO [Suspect]
     Dosage: UNK, DAILY (1/D)
  3. FORTEO [Suspect]
     Dosage: UNK, DAILY (1/D)
  4. NORVASC [Concomitant]
     Indication: BLOOD PRESSURE
     Dosage: 5 MG, UNK
  5. CALCIUM W/VITAMIN D NOS [Concomitant]
  6. VITAMIN D2 [Concomitant]
  7. ASCORBIC ACID [Concomitant]
  8. VITAMIN B12                        /00056201/ [Concomitant]
  9. ZINC [Concomitant]
  10. CRANBERRY [Concomitant]
  11. VITAMIN B COMPLEX CAP [Concomitant]

REACTIONS (3)
  - FALL [None]
  - FEMUR FRACTURE [None]
  - WRIST FRACTURE [None]
